FAERS Safety Report 16678583 (Version 1)
Quarter: 2019Q3

REPORT INFORMATION
  Report Type: Spontaneous
  Country: IT (occurrence: IT)
  Receive Date: 20190807
  Receipt Date: 20190807
  Transmission Date: 20191004
  Serious: Yes (Other)
  Sender: FDA-Public Use
  Company Number: IT-EISAI MEDICAL RESEARCH-EC-2019-060135

PATIENT
  Age: 31 Year
  Sex: Male

DRUGS (3)
  1. FYCOMPA [Suspect]
     Active Substance: PERAMPANEL
     Indication: PARTIAL SEIZURES
     Route: 048
     Dates: start: 20160705, end: 20170629
  2. TEGRETOL [Concomitant]
     Active Substance: CARBAMAZEPINE
     Indication: PARTIAL SEIZURES
     Dosage: FREQUENCY UNKNOWN
     Route: 048
     Dates: start: 19941029, end: 20190711
  3. GARDENALE [Concomitant]
     Active Substance: PHENOBARBITAL
     Indication: PARTIAL SEIZURES
     Dosage: FREQUENCY UNKNOWN
     Route: 048

REACTIONS (1)
  - Drug ineffective [Unknown]

NARRATIVE: CASE EVENT DATE: 20170629
